FAERS Safety Report 8247446-1 (Version None)
Quarter: 2012Q1

REPORT INFORMATION
  Report Type: 
  Country: None (occurrence: None)
  Receive Date: 20120327
  Receipt Date: 20120309
  Transmission Date: 20120608
  Serious: Yes (Other)
  Sender: FDA-Public Use
  Company Number: 2012030059

PATIENT
  Age: 22 Year
  Sex: Male

DRUGS (1)
  1. PENICILLAMINE [Suspect]
     Indication: HEPATO-LENTICULAR DEGENERATION
     Dosage: (750 MG,DAILY),  (1000 MG,DAILY)

REACTIONS (1)
  - DYSKINESIA [None]
